FAERS Safety Report 9936749 (Version 1)
Quarter: 2014Q1

REPORT INFORMATION
  Report Type: Spontaneous
  Country: US (occurrence: None)
  Receive Date: 20140107
  Receipt Date: 20140107
  Transmission Date: 20141002
  Serious: Yes (Other)
  Sender: FDA-Public Use
  Company Number: 2011AP002485

PATIENT
  Sex: Male

DRUGS (3)
  1. LATANOPROST OPHTHALMIC SOLUTION 0.005% [Suspect]
     Indication: GLAUCOMA
     Dates: start: 20110602
  2. TRAVATAN Z [Suspect]
     Indication: GLAUCOMA
     Dates: start: 20110831
  3. BIMATOPROST [Concomitant]

REACTIONS (3)
  - Ocular hyperaemia [None]
  - Intraocular pressure increased [None]
  - Drug ineffective [None]
